FAERS Safety Report 17514530 (Version 1)
Quarter: 2020Q1

REPORT INFORMATION
  Report Type: Spontaneous
  Country: DE (occurrence: DE)
  Receive Date: 20200309
  Receipt Date: 20200309
  Transmission Date: 20200409
  Serious: Yes (Congenital Anomaly, Other)
  Sender: FDA-Public Use
  Company Number: DE-AUROBINDO-AUR-APL-2020-011559

PATIENT
  Age: 1 Day
  Sex: Male
  Weight: 3.03 kg

DRUGS (4)
  1. DOXEPIN [Concomitant]
     Active Substance: DOXEPIN
     Indication: PRODUCT USED FOR UNKNOWN INDICATION
     Dosage: UNK
     Route: 064
     Dates: start: 20181007
  2. PAROXETIN [Concomitant]
     Active Substance: PAROXETINE HYDROCHLORIDE
     Indication: PRODUCT USED FOR UNKNOWN INDICATION
     Dosage: 10 MILLIGRAM, TWO TIMES A DAY (20 MG/D)
     Route: 064
     Dates: start: 20180905
  3. FOLSAURE SANAVITA [Concomitant]
     Indication: PRODUCT USED FOR UNKNOWN INDICATION
     Dosage: UNK
     Route: 064
  4. CITALOPRAM [Suspect]
     Active Substance: CITALOPRAM HYDROBROMIDE
     Indication: PRODUCT USED FOR UNKNOWN INDICATION
     Dosage: 20 MILLIGRAM, ONCE A DAY
     Route: 064
     Dates: start: 20181008

REACTIONS (3)
  - Congenital ureteropelvic junction obstruction [Unknown]
  - Foetal exposure during pregnancy [Unknown]
  - Congenital hydronephrosis [Unknown]

NARRATIVE: CASE EVENT DATE: 20190603
